FAERS Safety Report 16340015 (Version 1)
Quarter: 2019Q2

REPORT INFORMATION
  Report Type: Spontaneous
  Country: IN (occurrence: IN)
  Receive Date: 20190521
  Receipt Date: 20190521
  Transmission Date: 20190711
  Serious: Yes (Hospitalization)
  Sender: FDA-Public Use
  Company Number: IN-BAXTER-2019BAX009033

PATIENT
  Sex: Female

DRUGS (1)
  1. BUPICAN HEAVY [Suspect]
     Active Substance: BUPIVACAINE HYDROCHLORIDE
     Indication: PRODUCT USED FOR UNKNOWN INDICATION
     Dosage: DISCONTINUED WITH 60 ML OF DOSE PENDING AFTER 48 HOURS
     Route: 042

REACTIONS (2)
  - Incorrect drug administration rate [Unknown]
  - Muscular weakness [Recovered/Resolved]
